FAERS Safety Report 9442473 (Version 1)
Quarter: 2013Q3

REPORT INFORMATION
  Report Type: Spontaneous
  Country: JP (occurrence: JP)
  Receive Date: 20130806
  Receipt Date: 20130806
  Transmission Date: 20140515
  Serious: Yes (Other)
  Sender: FDA-Public Use
  Company Number: JP-PFIZER INC-2013226712

PATIENT
  Age: 40 Year
  Sex: 0

DRUGS (1)
  1. LYRICA [Suspect]
     Dosage: 225 MG, 1X/DAY
     Route: 048

REACTIONS (1)
  - Convulsion [Unknown]
